FAERS Safety Report 9017010 (Version 1)
Quarter: 2013Q1

REPORT INFORMATION
  Report Type: Spontaneous
  Country: None (occurrence: US)
  Receive Date: 20130117
  Receipt Date: 20130117
  Transmission Date: 20140127
  Serious: Yes (Other)
  Sender: FDA-Public Use
  Company Number: US-COVIDIEN/TYCO HEALTHCARE/MALLINCKRODT-T201300064

PATIENT
  Sex: Female

DRUGS (2)
  1. FENTANYL TRANSDERMAL SYSTEM [Suspect]
     Indication: PAIN
     Dosage: 50 UG/HR, Q 72 HOURS
     Route: 062
     Dates: start: 201205, end: 20130108
  2. LORTAB                             /00607101/ [Concomitant]
     Indication: PAIN
     Dosage: 7.5/500 MG,  PRN
     Route: 048

REACTIONS (2)
  - Drug withdrawal syndrome [Recovered/Resolved]
  - Crying [Recovered/Resolved]
